FAERS Safety Report 13155990 (Version 1)
Quarter: 2017Q1

REPORT INFORMATION
  Report Type: Spontaneous
  Country: US (occurrence: US)
  Receive Date: 20170126
  Receipt Date: 20170126
  Transmission Date: 20170428
  Serious: No
  Sender: FDA-Public Use
  Company Number: US-ROCHE-713844

PATIENT
  Sex: Female
  Weight: 72.6 kg

DRUGS (2)
  1. VALIUM [Suspect]
     Active Substance: DIAZEPAM
     Dosage: ROUTE: ORAL, STRENGTH: 10 MG
     Route: 050
  2. VALIUM [Suspect]
     Active Substance: DIAZEPAM
     Indication: PRODUCT USED FOR UNKNOWN INDICATION
     Dosage: ROUTE: INTRAVENOUS (IV)
     Route: 050

REACTIONS (1)
  - Drug effect prolonged [Not Recovered/Not Resolved]
